FAERS Safety Report 6595445-8 (Version None)
Quarter: 2010Q1

REPORT INFORMATION
  Report Type: 
  Country: None (occurrence: None)
  Receive Date: 20100223
  Receipt Date: 20100211
  Transmission Date: 20100710
  Serious: Yes (Other)
  Sender: FDA-Public Use
  Company Number: FR-BAYER-200937906GPV

PATIENT
  Age: 49 Year
  Sex: Female

DRUGS (2)
  1. MIRENA [Suspect]
     Indication: MENORRHAGIA
     Route: 015
     Dates: start: 20040801, end: 20090904
  2. MIRENA [Suspect]
     Route: 015
     Dates: start: 20090904

REACTIONS (2)
  - HEADACHE [None]
  - MENINGIOMA [None]
